FAERS Safety Report 10479015 (Version 3)
Quarter: 2014Q4

REPORT INFORMATION
  Report Type: Spontaneous
  Country: JP (occurrence: JP)
  Receive Date: 20140926
  Receipt Date: 20141016
  Transmission Date: 20150528
  Serious: Yes (Other)
  Sender: FDA-Public Use
  Company Number: JP-BAXTER-2014BAX056479

PATIENT
  Age: 70 Year
  Sex: Male

DRUGS (2)
  1. SUPRANE [Suspect]
     Active Substance: DESFLURANE
     Indication: PANCREATICODUODENECTOMY
     Route: 055
  2. REMIFENTANIL [Suspect]
     Active Substance: REMIFENTANIL
     Indication: PANCREATICODUODENECTOMY
     Route: 042

REACTIONS (5)
  - Quadriplegia [Recovered/Resolved]
  - Aortic stenosis [Unknown]
  - Ventricular fibrillation [Recovered/Resolved]
  - Mesenteric traction syndrome [Recovered/Resolved]
  - Hypoxic-ischaemic encephalopathy [Recovered/Resolved]
